FAERS Safety Report 6396055-8 (Version None)
Quarter: 2009Q4

REPORT INFORMATION
  Report Type: 
  Country: None (occurrence: None)
  Receive Date: 20091007
  Receipt Date: 20090924
  Transmission Date: 20100525
  Serious: Yes (Hospitalization, Other)
  Sender: FDA-Public Use
  Company Number: 232469K09USA

PATIENT
  Age: 38 Year
  Sex: Female
  Weight: 95 kg

DRUGS (7)
  1. REBIF [Suspect]
     Indication: MULTIPLE SCLEROSIS
     Dosage: 44 MCG, 3 IN 1 WEEKS, SUBCUTANEOUS
     Route: 058
     Dates: start: 20050425
  2. TYLENOL [Concomitant]
  3. ADVIL [Concomitant]
  4. LEVOTHYROXINE (LEVOTHYROXINE /00068001/) [Concomitant]
  5. TRICOR [Concomitant]
  6. VYTORIN [Concomitant]
  7. UNSPECIFIED MEDICATIONS (ALL OTHER THERAPEUTIC PRODUCTS) [Suspect]

REACTIONS (3)
  - INSULIN RESISTANCE [None]
  - RENAL FAILURE ACUTE [None]
  - URINARY TRACT INFECTION FUNGAL [None]
